FAERS Safety Report 9617429 (Version 1)
Quarter: 2013Q4

REPORT INFORMATION
  Report Type: Report from Study
  Country: AR (occurrence: AR)
  Receive Date: 20131011
  Receipt Date: 20131011
  Transmission Date: 20140711
  Serious: Yes (Hospitalization)
  Sender: FDA-Public Use
  Company Number: PHHY2013AR114310

PATIENT
  Sex: Female

DRUGS (1)
  1. EXFORGE D [Suspect]
     Indication: BLOOD PRESSURE
     Dosage: 1 DF (160/5/12.5 MG), DAILY
     Route: 048
     Dates: start: 2011

REACTIONS (4)
  - General physical health deterioration [Recovered/Resolved]
  - Blood sodium decreased [Recovered/Resolved]
  - Blood potassium decreased [Recovered/Resolved]
  - Stress [Recovered/Resolved]
